FAERS Safety Report 5338380-5 (Version None)
Quarter: 2007Q2

REPORT INFORMATION
  Report Type: 
  Country: None (occurrence: None)
  Receive Date: 20070322
  Receipt Date: 20060626
  Transmission Date: 20071010
  Serious: Yes (Other)
  Sender: FDA-Public Use
  Company Number: 200611988BCC

PATIENT
  Age: 58 Year
  Sex: Female

DRUGS (2)
  1. ALEVE [Suspect]
     Indication: ARTHRALGIA
     Dosage: 440 MG, ONCE, ORAL
     Route: 048
     Dates: start: 20060307
  2. LEVOTHYROXINE SODIUM [Concomitant]

REACTIONS (3)
  - ANAPHYLACTIC REACTION [None]
  - PRURITUS GENERALISED [None]
  - WHEEZING [None]
